FAERS Safety Report 11588366 (Version 1)
Quarter: 2015Q4

REPORT INFORMATION
  Report Type: Spontaneous
  Country: US (occurrence: None)
  Receive Date: 20151001
  Receipt Date: 20151001
  Transmission Date: 20160304
  Serious: No
  Sender: FDA-Public Use
  Company Number: None

PATIENT
  Age: 68 Year
  Sex: Male
  Weight: 77.11 kg

DRUGS (3)
  1. MULTIVITAMIN [Concomitant]
     Active Substance: VITAMINS
  2. CLONAZEPAM 1MG [Suspect]
     Active Substance: CLONAZEPAM
     Indication: MUSCULOSKELETAL STIFFNESS
     Dosage: 1
     Route: 048
  3. CARBIDOPA/LEVODOPA AMANTADINE [Concomitant]

REACTIONS (5)
  - Memory impairment [None]
  - Sleep disorder [None]
  - Muscular weakness [None]
  - Formication [None]
  - Constipation [None]

NARRATIVE: CASE EVENT DATE: 20150701
